FAERS Safety Report 11810091 (Version 1)
Quarter: 2015Q4

REPORT INFORMATION
  Report Type: Spontaneous
  Country: US (occurrence: US)
  Receive Date: 20151208
  Receipt Date: 20151208
  Transmission Date: 20160305
  Serious: Yes (Other)
  Sender: FDA-Public Use
  Company Number: US-WATSON-2015-26854

PATIENT
  Age: 55 Year
  Sex: Male

DRUGS (2)
  1. SIMVASTATIN (WATSON LABORATORIES) [Suspect]
     Active Substance: SIMVASTATIN
     Indication: HYPERLIPIDAEMIA
     Dosage: 20 MG, SINGLE
     Route: 065
  2. NIACIN. [Concomitant]
     Active Substance: NIACIN
     Indication: HYPERLIPIDAEMIA
     Dosage: 2 G, DAILY
     Route: 065

REACTIONS (1)
  - Anaphylactic reaction [Recovered/Resolved]
